FAERS Safety Report 13322541 (Version 1)
Quarter: 2017Q1

REPORT INFORMATION
  Report Type: Spontaneous
  Country: US (occurrence: US)
  Receive Date: 20170310
  Receipt Date: 20170310
  Transmission Date: 20170428
  Serious: Yes (Other)
  Sender: FDA-Public Use
  Company Number: US-ELI_LILLY_AND_COMPANY-US201607011842

PATIENT
  Sex: Male
  Weight: 93 kg

DRUGS (5)
  1. CYMBALTA [Suspect]
     Active Substance: DULOXETINE HYDROCHLORIDE
     Dosage: 30 MG, QD
     Route: 065
  2. CYMBALTA [Suspect]
     Active Substance: DULOXETINE HYDROCHLORIDE
     Dosage: 30 MG, QOD
     Route: 065
  3. CYMBALTA [Suspect]
     Active Substance: DULOXETINE HYDROCHLORIDE
     Indication: ANXIETY
     Dosage: UNK, UNKNOWN
     Route: 065
  4. CYMBALTA [Suspect]
     Active Substance: DULOXETINE HYDROCHLORIDE
     Dosage: 60 MG, QD
     Route: 065
  5. CYMBALTA [Suspect]
     Active Substance: DULOXETINE HYDROCHLORIDE
     Dosage: 30 MG, UNKNOWN
     Route: 065

REACTIONS (20)
  - Agitation [Unknown]
  - Suicidal ideation [Unknown]
  - Tremor [Unknown]
  - Amnesia [Unknown]
  - Drug withdrawal syndrome [Unknown]
  - Nausea [Unknown]
  - Headache [Unknown]
  - Affect lability [Unknown]
  - Anxiety [Unknown]
  - Poor quality sleep [Unknown]
  - Intentional product misuse [Unknown]
  - Confusional state [Unknown]
  - Abnormal dreams [Unknown]
  - Paraesthesia [Unknown]
  - Dysphoria [Unknown]
  - Fatigue [Unknown]
  - Diarrhoea [Unknown]
  - Hyperhidrosis [Unknown]
  - Irritability [Unknown]
  - Insomnia [Unknown]
